FAERS Safety Report 23486939 (Version 1)
Quarter: 2024Q1

REPORT INFORMATION
  Report Type: Report from Study
  Country: US (occurrence: US)
  Receive Date: 20240206
  Receipt Date: 20240206
  Transmission Date: 20240410
  Serious: Yes (Other)
  Sender: FDA-Public Use
  Company Number: US-ABBVIE-5619798

PATIENT
  Age: 67 Year
  Sex: Female

DRUGS (1)
  1. RINVOQ [Suspect]
     Active Substance: UPADACITINIB
     Indication: Rheumatoid arthritis
     Dosage: FORM STRENGTH: 15 MILLIGRAM
     Route: 048
     Dates: start: 20230814, end: 20240122

REACTIONS (5)
  - Bundle branch block left [Unknown]
  - White blood cell count decreased [Unknown]
  - Cardiac dysfunction [Recovering/Resolving]
  - Musculoskeletal stiffness [Not Recovered/Not Resolved]
  - Electrocardiogram abnormal [Unknown]

NARRATIVE: CASE EVENT DATE: 20240101
